FAERS Safety Report 19381586 (Version 6)
Quarter: 2022Q2

REPORT INFORMATION
  Report Type: Spontaneous
  Country: US (occurrence: US)
  Receive Date: 20210607
  Receipt Date: 20220516
  Transmission Date: 20220720
  Serious: Yes (Hospitalization, Other)
  Sender: FDA-Public Use
  Company Number: US-PFIZER INC-2021607945

PATIENT
  Age: 61 Year
  Sex: Female

DRUGS (8)
  1. XELJANZ [Suspect]
     Active Substance: TOFACITINIB CITRATE
     Indication: Rheumatoid arthritis
     Dosage: 5 MG, 2X/DAY
     Route: 048
     Dates: start: 2017, end: 202102
  2. XELJANZ [Suspect]
     Active Substance: TOFACITINIB CITRATE
     Indication: Osteoarthritis
     Dosage: 5 MG, 2X/DAY
     Route: 048
     Dates: start: 2021
  3. XELJANZ [Suspect]
     Active Substance: TOFACITINIB CITRATE
     Indication: Fibromyalgia
     Dosage: 5 MG, 2X/DAY
     Route: 048
     Dates: start: 2017
  4. XELJANZ [Suspect]
     Active Substance: TOFACITINIB CITRATE
     Dosage: 5 MG, 2X/DAY
     Route: 048
     Dates: start: 2017, end: 20220505
  5. ALLEGRA [Concomitant]
     Active Substance: FEXOFENADINE HYDROCHLORIDE
     Indication: Seasonal allergy
     Dosage: UNK
  6. FLONASE [Concomitant]
     Active Substance: FLUTICASONE PROPIONATE
     Indication: Seasonal allergy
     Dosage: UNK
  7. MELOXICAM [Concomitant]
     Active Substance: MELOXICAM
     Dosage: UNK
  8. TRAMADOL [Concomitant]
     Active Substance: TRAMADOL
     Dosage: UNK

REACTIONS (7)
  - Sinusitis [Recovering/Resolving]
  - Urinary tract infection [Recovered/Resolved]
  - Pancreatitis [Unknown]
  - Pustule [Unknown]
  - Bursitis [Not Recovered/Not Resolved]
  - Infection [Unknown]
  - Breakthrough pain [Unknown]

NARRATIVE: CASE EVENT DATE: 20210601
